FAERS Safety Report 7557102-0 (Version None)
Quarter: 2011Q2

REPORT INFORMATION
  Report Type: 
  Country: None (occurrence: None)
  Receive Date: 20110616
  Receipt Date: 20110616
  Transmission Date: 20111010
  Serious: No
  Sender: FDA-Public Use
  Company Number: None

PATIENT
  Age: 49 Year
  Sex: Male
  Weight: 83.9154 kg

DRUGS (1)
  1. LEXAPRO [Suspect]
     Indication: OBSESSIVE-COMPULSIVE DISORDER
     Dosage: 1 TABLET DAILY PO
     Route: 048
     Dates: start: 20110310, end: 20110605

REACTIONS (15)
  - HYPERHIDROSIS [None]
  - VISUAL IMPAIRMENT [None]
  - ASTHENIA [None]
  - DEPRESSION [None]
  - IMPULSIVE BEHAVIOUR [None]
  - LIBIDO DECREASED [None]
  - INSOMNIA [None]
  - SOMNOLENCE [None]
  - CONFUSIONAL STATE [None]
  - EUPHORIC MOOD [None]
  - DIZZINESS [None]
  - AMNESIA [None]
  - FATIGUE [None]
  - HEART RATE INCREASED [None]
  - COORDINATION ABNORMAL [None]
